FAERS Safety Report 23892307 (Version 1)
Quarter: 2024Q2

REPORT INFORMATION
  Report Type: Spontaneous
  Country: US (occurrence: None)
  Receive Date: 20240524
  Receipt Date: 20240524
  Transmission Date: 20240715
  Serious: No
  Sender: FDA-Public Use
  Company Number: US-ROCHE-3400710

PATIENT

DRUGS (1)
  1. ACTEMRA [Suspect]
     Active Substance: TOCILIZUMAB
     Indication: Product used for unknown indication
     Dosage: PATIENT RECEIVED 80MG INFUSION AND 400MG INFUSION
     Route: 042
     Dates: start: 20230724

REACTIONS (1)
  - Enterobacter test positive [Unknown]

NARRATIVE: CASE EVENT DATE: 20230724
